FAERS Safety Report 6515364-2 (Version None)
Quarter: 2009Q4

REPORT INFORMATION
  Report Type: 
  Country: None (occurrence: None)
  Receive Date: 20091223
  Receipt Date: 20091204
  Transmission Date: 20100525
  Serious: No
  Sender: FDA-Public Use
  Company Number: FR-ROCHE-674448

PATIENT
  Sex: Male

DRUGS (2)
  1. TAMIFLU [Suspect]
     Indication: DRUG USE FOR UNKNOWN INDICATION
     Dosage: ONE CAPSULE OF 75 MG TWICE A DAY. MORNING AND EVENING.
     Route: 065
  2. TAMIFLU [Suspect]
     Dosage: TWO CAPSLUES OF 150 MG TWICE A DAY. MORNING AND EVENING.
     Route: 065

REACTIONS (2)
  - MEDICATION ERROR [None]
  - NO ADVERSE EVENT [None]
